FAERS Safety Report 9678189 (Version 1)
Quarter: 2013Q4

REPORT INFORMATION
  Report Type: Spontaneous
  Country: US (occurrence: None)
  Receive Date: 20131106
  Receipt Date: 20131106
  Transmission Date: 20140711
  Serious: Yes (Hospitalization)
  Sender: FDA-Public Use
  Company Number: UTC-039750

PATIENT
  Age: 29 Year
  Sex: Female
  Weight: 79 kg

DRUGS (1)
  1. REMODULIN (INJECTION FOR INFUSION) (TREPROSTINIL SODIUM) [Suspect]
     Indication: PULMONARY ARTERIAL HYPERTENSION
     Dosage: 50 NG/ML, INTRAVENOUS DRIP
     Route: 041

REACTIONS (13)
  - Cholecystitis acute [None]
  - Hypokalaemia [None]
  - Hypocalcaemia [None]
  - Chills [None]
  - Pulmonary arterial pressure increased [None]
  - Blood pressure systolic increased [None]
  - Pulmonary valve incompetence [None]
  - Right atrial dilatation [None]
  - Mitral valve incompetence [None]
  - Dilatation ventricular [None]
  - Tricuspid valve incompetence [None]
  - Left atrial dilatation [None]
  - Dilatation ventricular [None]
